FAERS Safety Report 15147503 (Version 1)
Quarter: 2018Q3

REPORT INFORMATION
  Report Type: Spontaneous
  Country: US (occurrence: US)
  Receive Date: 20180716
  Receipt Date: 20180716
  Transmission Date: 20181010
  Serious: Yes (Life-Threatening)
  Sender: FDA-Public Use
  Company Number: US-TEVA-2018-US-926550

PATIENT
  Age: 76 Year
  Sex: Female

DRUGS (1)
  1. ADENOSINE. [Suspect]
     Active Substance: ADENOSINE
     Dosage: INTRACORONARY ADENOSINE 60MICROG (10ML) BOLUS INJECTION
     Route: 022

REACTIONS (1)
  - Ventricular fibrillation [Recovered/Resolved]
